FAERS Safety Report 21040039 (Version 1)
Quarter: 2022Q3

REPORT INFORMATION
  Report Type: Spontaneous
  Country: US (occurrence: US)
  Receive Date: 20220704
  Receipt Date: 20220704
  Transmission Date: 20221027
  Serious: No
  Sender: FDA-Public Use
  Company Number: US-BIOGEN-2022BI01137042

PATIENT
  Sex: Female

DRUGS (1)
  1. TYSABRI [Suspect]
     Active Substance: NATALIZUMAB
     Indication: Multiple sclerosis
     Dosage: INFUSE 300 MG INTRAVENOUSLY EVERY 4 WEEKS OVER ONE HOUR AT INFUSION CLINIC
     Route: 050

REACTIONS (2)
  - Protein urine present [Unknown]
  - Pollakiuria [Unknown]
